FAERS Safety Report 6022593-3 (Version None)
Quarter: 2008Q4

REPORT INFORMATION
  Report Type: 
  Country: None (occurrence: None)
  Receive Date: 20081230
  Receipt Date: 20081223
  Transmission Date: 20090506
  Serious: Yes (Hospitalization, Other)
  Sender: FDA-Public Use
  Company Number: PHBS2008RU06714

PATIENT
  Sex: Male

DRUGS (3)
  1. CYCLOSPORINE [Suspect]
     Indication: RENAL TRANSPLANT
  2. PREDNISOLONE [Suspect]
     Indication: RENAL TRANSPLANT
     Dosage: UNK
     Dates: start: 19890101
  3. AZATHIOPRINE [Concomitant]
     Indication: RENAL TRANSPLANT

REACTIONS (7)
  - COMPLICATIONS OF TRANSPLANTED KIDNEY [None]
  - DEEP VEIN THROMBOSIS POSTOPERATIVE [None]
  - RENAL DISORDER [None]
  - RENAL TRANSPLANT [None]
  - THROMBOSIS [None]
  - TYPE 2 DIABETES MELLITUS [None]
  - VENA CAVA FILTER INSERTION [None]
